FAERS Safety Report 11214229 (Version 5)
Quarter: 2015Q3

REPORT INFORMATION
  Report Type: Report from Study
  Country: US (occurrence: US)
  Receive Date: 20150624
  Receipt Date: 20150814
  Transmission Date: 20151125
  Serious: Yes (Hospitalization)
  Sender: FDA-Public Use
  Company Number: US-AMGEN-USACT2015060094

PATIENT
  Age: 76 Year
  Sex: Male

DRUGS (25)
  1. PLAQUENIL [Concomitant]
     Active Substance: HYDROXYCHLOROQUINE SULFATE
     Indication: RHEUMATOID ARTHRITIS
     Dosage: 200 MG, EVERY DAY
     Route: 048
     Dates: start: 20080520, end: 20141216
  2. POTASSIUM CHLORIDE. [Concomitant]
     Active Substance: POTASSIUM CHLORIDE
     Indication: DYSPNOEA
     Dosage: 10 (UNIT NOT PROVIDED) EVERYDAY
     Route: 048
     Dates: start: 20150717
  3. ETANERCEPT [Suspect]
     Active Substance: ETANERCEPT
     Indication: RHEUMATOID ARTHRITIS
     Dosage: 50 MG, QWK
     Route: 058
  4. NORVASC [Concomitant]
     Active Substance: AMLODIPINE BESYLATE
     Indication: HYPERTENSION
     Dosage: 1 IN 1 DAY
     Route: 048
  5. FOLIC ACID. [Concomitant]
     Active Substance: FOLIC ACID
     Indication: RHEUMATOID ARTHRITIS
     Dosage: 3 MG, EVERY DAY
     Route: 048
     Dates: start: 20080821
  6. PIROXICAM. [Concomitant]
     Active Substance: PIROXICAM
     Indication: OSTEOARTHRITIS
     Dosage: 10 MG, EVERY DAY
     Route: 048
     Dates: start: 20101021, end: 20131001
  7. ADVAIR HFA [Concomitant]
     Active Substance: FLUTICASONE PROPIONATE\SALMETEROL XINAFOATE
     Indication: DYSPNOEA
     Dosage: 250 MUG, UNK
     Dates: start: 20130923
  8. ALBUTEROL                          /00139501/ [Concomitant]
     Active Substance: ALBUTEROL
     Indication: BRONCHITIS
  9. ALBUTEROL                          /00139501/ [Concomitant]
     Active Substance: ALBUTEROL
     Indication: RESPIRATORY TRACT CONGESTION
     Dosage: 90 MUG, UNK
     Dates: start: 20140217, end: 20140816
  10. PLAQUENIL [Concomitant]
     Active Substance: HYDROXYCHLOROQUINE SULFATE
     Dosage: 200 MG, QD
     Route: 048
     Dates: start: 20141217
  11. BACTRIM DS [Concomitant]
     Active Substance: SULFAMETHOXAZOLE\TRIMETHOPRIM
     Indication: RESPIRATORY TRACT CONGESTION
     Dosage: 400 MG, BID
     Route: 048
     Dates: start: 20140221, end: 20140330
  12. FUROSEMIDE. [Concomitant]
     Active Substance: FUROSEMIDE
     Indication: DYSPNOEA
     Dosage: 40 MG PILL EVERYDAY
     Route: 048
     Dates: start: 20150717
  13. OMEPRAZOLE. [Concomitant]
     Active Substance: OMEPRAZOLE
     Indication: HYPERCHLORHYDRIA
     Dosage: UNK, EVERY DAY
     Route: 048
  14. FLONASE [Concomitant]
     Active Substance: FLUTICASONE PROPIONATE
     Dosage: 50 MUG,AS NEEDED
  15. TETANUS VACCINE [Concomitant]
     Active Substance: CLOSTRIDIUM TETANI TOXOID ANTIGEN (FORMALDEHYDE INACTIVATED)
     Indication: LACERATION
     Dosage: 0.5 ML, UNK
     Route: 030
     Dates: start: 20141031, end: 20141031
  16. SULFASALAZINE. [Concomitant]
     Active Substance: SULFASALAZINE
     Indication: RHEUMATOID ARTHRITIS
     Dosage: 1000 MG, IN 1 DAY
     Route: 048
     Dates: start: 20080619
  17. PIROXICAM. [Concomitant]
     Active Substance: PIROXICAM
     Dosage: 10 MG, EVERY DAY
     Route: 048
     Dates: start: 20131024
  18. METHOTREXATE [Concomitant]
     Active Substance: METHOTREXATE
     Indication: RHEUMATOID ARTHRITIS
     Dosage: 22.5 MG, QWK
     Route: 058
     Dates: start: 20080619
  19. LISINOPRIL. [Concomitant]
     Active Substance: LISINOPRIL
     Indication: CARDIOMYOPATHY
     Dosage: 10 MG, QD
  20. MINOCYCLINE [Concomitant]
     Active Substance: MINOCYCLINE\MINOCYCLINE HYDROCHLORIDE
     Indication: RHEUMATOID ARTHRITIS
     Dosage: 100 MG, BID
     Route: 048
     Dates: start: 20080303
  21. FLOMAX [Concomitant]
     Active Substance: TAMSULOSIN HYDROCHLORIDE
     Indication: POLLAKIURIA
     Dosage: 0.4 MG, EVERY DAY
     Route: 048
     Dates: start: 20130205
  22. AMOXICILLIN. [Concomitant]
     Active Substance: AMOXICILLIN
     Indication: RESPIRATORY TRACT CONGESTION
     Dosage: 500 MG, TID
     Route: 048
     Dates: start: 20140217, end: 20140224
  23. LEVOFLOXACIN. [Concomitant]
     Active Substance: LEVOFLOXACIN
     Indication: BRONCHITIS
     Dosage: 750 MG, EVERY DAY
     Route: 048
     Dates: start: 20140816, end: 20140823
  24. LEVOTHYROXINE. [Concomitant]
     Active Substance: LEVOTHYROXINE
     Indication: HYPOTHYROIDISM
     Dosage: UNK, EVERY DAY
     Route: 048
  25. LOTRIMIN                           /00212501/ [Concomitant]
     Dosage: 0.1 %, EVERY DAY
     Route: 061
     Dates: start: 20130205, end: 20130208

REACTIONS (2)
  - Cardiomyopathy [Not Recovered/Not Resolved]
  - Pulmonary embolism [Recovered/Resolved]

NARRATIVE: CASE EVENT DATE: 20150608
